FAERS Safety Report 15297067 (Version 1)
Quarter: 2018Q3

REPORT INFORMATION
  Report Type: Spontaneous
  Country: US (occurrence: US)
  Receive Date: 20180820
  Receipt Date: 20180820
  Transmission Date: 20181010
  Serious: Yes (Hospitalization)
  Sender: FDA-Public Use
  Company Number: US-PERRIGO-18US008008

PATIENT
  Age: 72 Year
  Sex: Female

DRUGS (1)
  1. IBUPROFEN. [Suspect]
     Active Substance: IBUPROFEN
     Indication: BACK PAIN
     Dosage: UNK (USED CHRONICALLY)
     Route: 048

REACTIONS (2)
  - Jejunal ulcer [Recovered/Resolved]
  - Gastrointestinal haemorrhage [Recovered/Resolved]
